FAERS Safety Report 9000855 (Version 1)
Quarter: 2012Q4

REPORT INFORMATION
  Report Type: Spontaneous
  Country: IT (occurrence: None)
  Receive Date: 20121226
  Receipt Date: 20121226
  Transmission Date: 20130627
  Serious: Yes (Life-Threatening)
  Sender: FDA-Public Use
  Company Number: MFR #2012ST000779

PATIENT
  Age: 76 Year
  Sex: Male

DRUGS (2)
  1. CARNITOR [Suspect]
     Dates: start: 20120516, end: 20120523
  2. ESOMEPRAZOLE [Suspect]

REACTIONS (14)
  - Altered state of consciousness [None]
  - Somnolence [None]
  - Vomiting [None]
  - Blood pressure systolic increased [None]
  - Ascites [None]
  - Abdominal distension [None]
  - Depressed level of consciousness [None]
  - Oedema peripheral [None]
  - Hepatojugular reflux [None]
  - Pancytopenia [None]
  - Blood creatinine increased [None]
  - Blood urea increased [None]
  - Blood bilirubin increased [None]
  - Hepatic encephalopathy [None]
